FAERS Safety Report 18474001 (Version 1)
Quarter: 2020Q4

REPORT INFORMATION
  Report Type: Spontaneous
  Country: SE (occurrence: SE)
  Receive Date: 20201106
  Receipt Date: 20201106
  Transmission Date: 20210114
  Serious: Yes (Other)
  Sender: FDA-Public Use
  Company Number: SE-TEVA-2020-SE-1844889

PATIENT
  Age: 22 Year
  Sex: Female
  Weight: 70 kg

DRUGS (4)
  1. CANODERM [Concomitant]
     Active Substance: UREA
     Dates: start: 20190106, end: 20190807
  2. PROPYLESS [Concomitant]
     Dates: start: 20190108, end: 20201011
  3. ISOTRETINOIN. [Suspect]
     Active Substance: ISOTRETINOIN
     Indication: ACNE
     Dosage: AT MOST 7 CAPSULES / DAY. INCREASED AND DECREASED GRADUALLY
     Route: 065
     Dates: start: 20190114, end: 20190805
  4. DESLORATADINE. [Concomitant]
     Active Substance: DESLORATADINE
     Dosage: INTAKE DURING POLLEN SEASON
     Dates: start: 20190307, end: 20200606

REACTIONS (5)
  - Anorectal discomfort [Recovering/Resolving]
  - Dry skin [Recovered/Resolved]
  - Nasal dryness [Recovered/Resolved]
  - Vulvovaginal injury [Recovered/Resolved]
  - Dry eye [Recovered/Resolved]

NARRATIVE: CASE EVENT DATE: 2019
